FAERS Safety Report 8052398-3 (Version None)
Quarter: 2012Q1

REPORT INFORMATION
  Report Type: 
  Country: None (occurrence: None)
  Receive Date: 20120118
  Receipt Date: 20120110
  Transmission Date: 20120608
  Serious: Yes (Other)
  Sender: FDA-Public Use
  Company Number: US-PFIZER INC-2012008400

PATIENT
  Sex: Female

DRUGS (1)
  1. XALKORI [Suspect]
     Dosage: UNK

REACTIONS (6)
  - NEOPLASM MALIGNANT [None]
  - VITREOUS FLOATERS [None]
  - RASH GENERALISED [None]
  - OESOPHAGEAL CARCINOMA [None]
  - GASTRITIS [None]
  - PHOTOPSIA [None]
